FAERS Safety Report 19131662 (Version 2)
Quarter: 2021Q2

REPORT INFORMATION
  Report Type: Report from Study
  Country: DE (occurrence: DE)
  Receive Date: 20210413
  Receipt Date: 20210419
  Transmission Date: 20210717
  Serious: Yes (Hospitalization)
  Sender: FDA-Public Use
  Company Number: DE-ROCHE-2532888

PATIENT
  Age: 63 Year
  Sex: Female
  Weight: 61 kg

DRUGS (7)
  1. DOXORUBICIN [Suspect]
     Active Substance: DOXORUBICIN
     Indication: HER2 POSITIVE BREAST CANCER
     Dosage: DATE OF THE MOST RECENT DOSE OF DOXORUBACIN 103 MG PRIOR TO EVENT ONSET: 17/JUL/2019
     Route: 042
     Dates: start: 20190717
  2. AKYNZEO [Concomitant]
     Active Substance: NETUPITANT\PALONOSETRON HYDROCHLORIDE
     Dates: start: 20190717, end: 20190821
  3. PLACEBO [Suspect]
     Active Substance: UNSPECIFIED INGREDIENT
     Indication: HER2 POSITIVE BREAST CANCER
     Dosage: DATE OF THE MOST RECENT DOSE OF PLACEBO PRIOR TO EVENT ONSET: 17/JUL/2019
     Route: 042
     Dates: start: 20190717
  4. CYCLOPHOSPHAMIDE. [Suspect]
     Active Substance: CYCLOPHOSPHAMIDE
     Indication: HER2 POSITIVE BREAST CANCER
     Dosage: DATE OF THE MOST RECENT DOSE OF CYCLOPHOSPHAMIDE AT 1032 MG PRIOR TO EVENT ONSET: 17/JUL/2019
     Route: 042
     Dates: start: 20190717
  5. DEXAMETHASON [Concomitant]
     Active Substance: DEXAMETHASONE
     Route: 048
     Dates: start: 20190717, end: 20190821
  6. MESNA. [Concomitant]
     Active Substance: MESNA
     Dates: start: 20190717, end: 20190821
  7. LOPERAMID [Concomitant]
     Active Substance: LOPERAMIDE
     Indication: DIARRHOEA
     Dates: start: 20190724, end: 20190806

REACTIONS (1)
  - Febrile neutropenia [Recovered/Resolved]

NARRATIVE: CASE EVENT DATE: 20190724
